FAERS Safety Report 11568635 (Version 1)
Quarter: 2015Q3

REPORT INFORMATION
  Report Type: Spontaneous
  Country: US (occurrence: None)
  Receive Date: 20150928
  Receipt Date: 20150928
  Transmission Date: 20151125
  Serious: Yes (Hospitalization)
  Sender: FDA-Public Use
  Company Number: None

PATIENT
  Age: 11 Year
  Sex: Male
  Weight: 39.1 kg

DRUGS (2)
  1. RADIATION [Suspect]
     Active Substance: RADIATION THERAPY
  2. TEMOZOLOMIDE 100 MG TEVA USA [Suspect]
     Active Substance: TEMOZOLOMIDE
     Indication: ASTROCYTOMA
     Route: 048
     Dates: start: 20150518, end: 20150617

REACTIONS (2)
  - Aplastic anaemia [None]
  - Pancytopenia [None]

NARRATIVE: CASE EVENT DATE: 20150715
